FAERS Safety Report 8058367-1 (Version None)
Quarter: 2012Q1

REPORT INFORMATION
  Report Type: 
  Country: None (occurrence: None)
  Receive Date: 20120120
  Receipt Date: 20120110
  Transmission Date: 20120608
  Serious: Yes (Hospitalization)
  Sender: FDA-Public Use
  Company Number: US-BAYER-2011-038823

PATIENT
  Age: 29 Year
  Sex: Female
  Weight: 71.655 kg

DRUGS (4)
  1. YAZ [Suspect]
     Indication: ORAL CONTRACEPTION
     Dosage: UNK
     Dates: start: 20050101, end: 20080601
  2. YAZ [Suspect]
     Indication: PREMENSTRUAL SYNDROME
  3. BISMUTH SUBSALICYLATE [Concomitant]
     Dosage: UNK UNK, PRN
     Route: 048
  4. ROLAIDS [Concomitant]
     Dosage: UNK UNK, PRN
     Route: 048

REACTIONS (6)
  - INJURY [None]
  - PAIN [None]
  - CHOLECYSTITIS ACUTE [None]
  - ANHEDONIA [None]
  - ANXIETY [None]
  - GALLBLADDER DISORDER [None]
